FAERS Safety Report 23149478 (Version 10)
Quarter: 2024Q3

REPORT INFORMATION
  Report Type: Report from Study
  Country: ES (occurrence: ES)
  Receive Date: 20231106
  Receipt Date: 20240701
  Transmission Date: 20241017
  Serious: Yes (Hospitalization, Other)
  Sender: MYLAN
  Company Number: ES-CELLTRION HEALTHCARE HUNGARY KFT-2023ES020390

PATIENT
  Age: 71 Year
  Sex: Female
  Weight: 70 kg

DRUGS (32)
  1. LENALIDOMIDE [Suspect]
     Active Substance: LENALIDOMIDE
     Indication: Follicular lymphoma
     Dosage: 20 MILLIGRAM, QD  DAYS 1-21
     Route: 048
     Dates: start: 20230720, end: 20231002
  2. LENALIDOMIDE [Suspect]
     Active Substance: LENALIDOMIDE
     Dosage: 20 MILLIGRAM, QD  DAYS 1-21
     Route: 048
     Dates: start: 20230720, end: 20230924
  3. LENALIDOMIDE [Suspect]
     Active Substance: LENALIDOMIDE
     Dosage: 20 MILLIGRAM
     Route: 048
  4. LENALIDOMIDE [Suspect]
     Active Substance: LENALIDOMIDE
     Dosage: LAST DOSE PRIOR TO THE SERIOUS ADVERSE EVENT
     Route: 048
     Dates: start: 20230923
  5. LENALIDOMIDE [Suspect]
     Active Substance: LENALIDOMIDE
     Dosage: LAST DOSES OF INCMOR00208/PLACEBO, LENALIDOMIDE AND RITUXIMAB, PRIOR TO THE SAE TAKEN
     Route: 048
     Dates: start: 20231002
  6. LENALIDOMIDE [Suspect]
     Active Substance: LENALIDOMIDE
     Dosage: 20 MILLIGRAM (LAST DOSE OF LENALIDOMIDE PRIOR TO THE SAE OF FEVER WAS TAKEN)
     Route: 048
     Dates: start: 20231109, end: 20231112
  7. LENALIDOMIDE [Suspect]
     Active Substance: LENALIDOMIDE
     Dosage: 20MG(LASTDOSEOFINCMOR00208/PLACEBO,LENALIDOMIDEANDRITUXIMAB PRIORTOSAEOFLUNGINFECTION,2NDOCCURRENCE)
     Route: 048
     Dates: start: 20231116, end: 20231122
  8. LENALIDOMIDE [Suspect]
     Active Substance: LENALIDOMIDE
     Dosage: UNK
     Route: 065
     Dates: start: 20231207, end: 20231219
  9. LENALIDOMIDE [Suspect]
     Active Substance: LENALIDOMIDE
     Dosage: THE LAST DOSE OF LENALIDOMIDE PRIOR TO THE SAE OF PNEUMONIA COVID-19 WAS TAKEN ON 20NOV2023
     Route: 065
     Dates: start: 20231120, end: 20231120
  10. LENALIDOMIDE [Suspect]
     Active Substance: LENALIDOMIDE
     Dosage: 15 MILLIGRAM
     Route: 048
     Dates: start: 20240118
  11. RITUXIMAB [Suspect]
     Active Substance: RITUXIMAB
     Indication: Follicular lymphoma
     Dosage: 694 MILLIGRAM CYCLICAL (375 MG/SQ.M) FOR 5 CYCLES
     Route: 042
     Dates: start: 20230720
  12. RITUXIMAB [Suspect]
     Active Substance: RITUXIMAB
     Dosage: 690 MG (LAST DOSE PRIOR SERIOUS ADVERSE EVENT)
     Route: 042
     Dates: start: 20231002
  13. RITUXIMAB [Suspect]
     Active Substance: RITUXIMAB
     Dosage: LAST DOSE OF RITUXIMAB PRIOR TO THE SERIOUS ADVERSE EVENT (SAE)
     Route: 065
     Dates: start: 20230915
  14. RITUXIMAB [Suspect]
     Active Substance: RITUXIMAB
     Dosage: PLACEBO, LENALIDOMIDE AND RITUXIMAB, PRIOR TO THE SAE
     Route: 042
     Dates: start: 20231002
  15. RITUXIMAB [Suspect]
     Active Substance: RITUXIMAB
     Dosage: 679 MILLIGRAM (PLACEBO AND RITUXIMAB PRIOR TO THE SAE OF FEVER WERE TAKEN)
     Route: 042
     Dates: start: 20231109, end: 20231113
  16. RITUXIMAB [Suspect]
     Active Substance: RITUXIMAB
     Dosage: THE LAST DOSE OF RITUXIMAB PRIOR TO THE SAE OF LUNG INFECTION (SECOND OCCURRENCE) WAS TAKEN ON AN UN
     Route: 065
  17. RITUXIMAB [Suspect]
     Active Substance: RITUXIMAB
     Dosage: RITUXIMAB (679 MG) PRIOR TO THE SAE OF LUNG INFECTION (FIRST OCCURRENCE) WERE TAKEN ON 11OCT2023
     Route: 065
     Dates: start: 20231011
  18. RITUXIMAB [Suspect]
     Active Substance: RITUXIMAB
     Dosage: 375 MILLIGRAM/SQ. METER
     Route: 042
  19. TAFASITAMAB [Suspect]
     Active Substance: TAFASITAMAB
     Indication: Follicular lymphoma
     Dosage: UNK
     Route: 042
  20. TAFASITAMAB [Suspect]
     Active Substance: TAFASITAMAB
     Dosage: 974 MILLIGRAM
     Route: 042
     Dates: start: 20230720
  21. TAFASITAMAB [Suspect]
     Active Substance: TAFASITAMAB
     Dosage: LAST DOSES OF INCMOR00208/PLACEBO, LENALIDOMIDE AND RITUXIMAB, PRIOR TO THE SAE WAS TAKEN
     Route: 042
     Dates: start: 20231002
  22. TAFASITAMAB [Suspect]
     Active Substance: TAFASITAMAB
     Dosage: LAST DOSE PRIOR TO THE SERIOUS ADVERSE EVENT
     Route: 042
     Dates: start: 20231109, end: 20231113
  23. TAFASITAMAB [Suspect]
     Active Substance: TAFASITAMAB
     Dosage: UNK
     Route: 065
     Dates: start: 20231122
  24. TAFASITAMAB [Suspect]
     Active Substance: TAFASITAMAB
     Dosage: UNK
     Route: 065
     Dates: start: 20231207, end: 20231220
  25. TAFASITAMAB [Suspect]
     Active Substance: TAFASITAMAB
     Dosage: UNK MILLIGRAM
     Route: 065
     Dates: start: 20240119
  26. TAFASITAMAB [Suspect]
     Active Substance: TAFASITAMAB
     Dosage: UNK
     Route: 065
     Dates: start: 20230928
  27. TAFASITAMAB [Suspect]
     Active Substance: TAFASITAMAB
     Dosage: PLACEBO AND RITUXIMAB (679 MG) PRIOR TO THE SAE OF LUNG INFECTION (FIRST OCCURRENCE) WERE TAKEN
     Route: 065
     Dates: start: 20231011
  28. TAFASITAMAB [Suspect]
     Active Substance: TAFASITAMAB
     Dosage: LAST DOSE OF INCMOR00208/PLACEBO PRIOR TO THE SAE
     Route: 065
     Dates: start: 20230922
  29. LEVOFLOXACIN [Concomitant]
     Active Substance: LEVOFLOXACIN
     Dosage: UNK
     Route: 065
     Dates: start: 20230917
  30. LEVOFLOXACIN [Concomitant]
     Active Substance: LEVOFLOXACIN
     Dosage: UNK
     Route: 065
     Dates: start: 20230924
  31. PNEUMOCOCCAL VACCINE POLYVALENT NOS [Concomitant]
     Active Substance: PNEUMOCOCCAL VACCINE POLYVALENT
     Dosage: UNK
     Route: 065
     Dates: start: 20240306, end: 20240306
  32. VARICELLA-ZOSTER VIRUS STRAIN OKA/MERCK LIVE ANTIGEN [Concomitant]
     Active Substance: VARICELLA-ZOSTER VIRUS STRAIN OKA/MERCK LIVE ANTIGEN
     Dosage: UNK
     Route: 065
     Dates: start: 20240306, end: 20240306

REACTIONS (3)
  - COVID-19 pneumonia [Recovered/Resolved]
  - Pneumonia [Recovered/Resolved]
  - Respiratory tract infection [Not Recovered/Not Resolved]

NARRATIVE: CASE EVENT DATE: 20230824
